FAERS Safety Report 15951984 (Version 1)
Quarter: 2019Q1

REPORT INFORMATION
  Report Type: Spontaneous
  Country: PT (occurrence: PT)
  Receive Date: 20190212
  Receipt Date: 20190212
  Transmission Date: 20190417
  Serious: Yes (Other)
  Sender: FDA-Public Use
  Company Number: PT-MYLANLABS-2019M1012279

PATIENT
  Age: 47 Year

DRUGS (2)
  1. TIANEPTINE [Concomitant]
     Active Substance: TIANEPTINE
     Dosage: 25 MILLIGRAM, QD
  2. QUETIAPINE. [Suspect]
     Active Substance: QUETIAPINE
     Indication: INSOMNIA
     Dosage: 200 MILLIGRAM(1 AO DEITAR)
     Route: 048
     Dates: start: 20180716

REACTIONS (1)
  - Insomnia [Not Recovered/Not Resolved]

NARRATIVE: CASE EVENT DATE: 20180716
